FAERS Safety Report 13800301 (Version 1)
Quarter: 2017Q3

REPORT INFORMATION
  Report Type: Spontaneous
  Country: US (occurrence: US)
  Receive Date: 20170727
  Receipt Date: 20170727
  Transmission Date: 20171127
  Serious: No
  Sender: FDA-Public Use
  Company Number: US-JNJFOC-20170522418

PATIENT
  Sex: Male

DRUGS (2)
  1. MENS ROGAINE EXTRA STRENGTH [Suspect]
     Active Substance: MINOXIDIL
     Route: 061
  2. MENS ROGAINE EXTRA STRENGTH [Suspect]
     Active Substance: MINOXIDIL
     Indication: ALOPECIA
     Dosage: USING SINCE 20 YEARS AT THE TIME OF REPORT
     Route: 061
     Dates: end: 2016

REACTIONS (3)
  - Product formulation issue [Unknown]
  - Skin disorder [Not Recovered/Not Resolved]
  - Precancerous cells present [Not Recovered/Not Resolved]
